FAERS Safety Report 5143329-4 (Version None)
Quarter: 2006Q4

REPORT INFORMATION
  Report Type: 
  Country: None (occurrence: None)
  Receive Date: 20061103
  Receipt Date: 20061025
  Transmission Date: 20070319
  Serious: Yes (Hospitalization)
  Sender: FDA-Public Use
  Company Number: FR-ROCHE-468852

PATIENT
  Age: 58 Year
  Sex: Male

DRUGS (8)
  1. CELLCEPT [Suspect]
     Route: 048
     Dates: start: 19940615
  2. CELLCEPT [Suspect]
     Dosage: REDUCED ON DISCHARGE.
     Route: 048
  3. SANDIMMUNE [Suspect]
     Route: 048
     Dates: start: 19940615
  4. CORTANCYL [Suspect]
     Route: 048
     Dates: start: 19940615
  5. TAHOR [Concomitant]
     Dosage: DOSAGE DECREASED TO 20 MG DAILY ON DISCHARGE.
  6. HUMALOG [Concomitant]
     Dosage: STOPPED ON DISCHARGE.
  7. TENORMIN [Concomitant]
     Dosage: DOSAGE DECREASED TO 25 MG DAILY ON DISCHARGE.
  8. KAYEXALATE CALCIUM [Concomitant]
     Dosage: STOPPED ON DISCHARGE.

REACTIONS (6)
  - HYPERTENSION [None]
  - PYREXIA [None]
  - PYURIA [None]
  - SEPSIS [None]
  - TACHYCARDIA [None]
  - URINARY RETENTION [None]
